FAERS Safety Report 7790369-2 (Version None)
Quarter: 2011Q3

REPORT INFORMATION
  Report Type: 
  Country: None (occurrence: None)
  Receive Date: 20110930
  Receipt Date: 20110926
  Transmission Date: 20111222
  Serious: Yes (Death, Hospitalization)
  Sender: FDA-Public Use
  Company Number: JP-ELI_LILLY_AND_COMPANY-JP201109007742

PATIENT
  Age: 74 Year
  Sex: Male
  Weight: 61 kg

DRUGS (9)
  1. LOXOPROFEN SODIUM [Concomitant]
     Dosage: 60 MG, TID
     Route: 048
  2. WARFARIN SODIUM [Concomitant]
     Dosage: 1 MG, QD
     Route: 048
  3. MAGNESIUM SULFATE [Concomitant]
     Dosage: 330 MG, TID
     Route: 048
  4. ALIMTA [Suspect]
     Indication: LUNG ADENOCARCINOMA STAGE IV
     Dosage: 865 MG, UNK
     Route: 042
     Dates: start: 20110808, end: 20110808
  5. FUROSEMIDE [Concomitant]
     Dosage: 10 MG, QD
     Route: 048
  6. DIOVAN [Concomitant]
     Dosage: 80 MG, QD
     Route: 048
  7. MUCODYNE [Concomitant]
     Dosage: 500 MG, TID
     Route: 048
  8. CARBOPLATIN [Concomitant]
     Indication: LUNG ADENOCARCINOMA STAGE IV
     Dosage: 490 MG, UNK
     Route: 042
     Dates: start: 20110808, end: 20110808
  9. PANVITAN [Concomitant]
     Dosage: 1 G, QD
     Route: 048

REACTIONS (1)
  - INTERSTITIAL LUNG DISEASE [None]
